FAERS Safety Report 16170347 (Version 5)
Quarter: 2020Q4

REPORT INFORMATION
  Report Type: Report from Study
  Country: GB (occurrence: GB)
  Receive Date: 20190408
  Receipt Date: 20201217
  Transmission Date: 20210113
  Serious: Yes (Hospitalization, Other)
  Sender: FDA-Public Use
  Company Number: PHHY2018GB106565

PATIENT
  Age: 62 Year
  Sex: Male

DRUGS (6)
  1. SANDOSTATIN LAR DEPOT [Suspect]
     Active Substance: OCTREOTIDE ACETATE
     Dosage: 30 MG, Q4W
     Route: 030
  2. VITAMIN D [Concomitant]
     Active Substance: VITAMIN D NOS
     Indication: PRODUCT USED FOR UNKNOWN INDICATION
     Dosage: UNK, QD
     Route: 065
  3. PICOLAX [Concomitant]
     Indication: COLONOSCOPY
     Dosage: UNK
     Route: 065
  4. SANDOSTATIN LAR DEPOT [Suspect]
     Active Substance: OCTREOTIDE ACETATE
     Indication: NEUROENDOCRINE TUMOUR
     Dosage: 20 MG, QMO
     Route: 030
  5. DIAZEPAM. [Concomitant]
     Active Substance: DIAZEPAM
     Indication: TRANSCATHETER ARTERIAL CHEMOEMBOLISATION
     Dosage: UNK
     Route: 065
  6. SANDOSTATIN LAR DEPOT [Suspect]
     Active Substance: OCTREOTIDE ACETATE

REACTIONS (35)
  - Haemorrhoids [Unknown]
  - Flushing [Unknown]
  - Depressed mood [Unknown]
  - Flatulence [Unknown]
  - Abdominal pain [Recovering/Resolving]
  - Malaise [Unknown]
  - Feeling cold [Unknown]
  - Vitamin D increased [Unknown]
  - Miliaria [Unknown]
  - Dermatitis [Unknown]
  - Drug hypersensitivity [Unknown]
  - Abdominal distension [Recovering/Resolving]
  - Diarrhoea [Recovering/Resolving]
  - Rash [Unknown]
  - Weight decreased [Unknown]
  - Migraine [Unknown]
  - Chest discomfort [Unknown]
  - Gastric infection [Recovered/Resolved]
  - Influenza [Unknown]
  - Chills [Unknown]
  - Gastritis [Recovering/Resolving]
  - Dry skin [Unknown]
  - Pruritus [Unknown]
  - Dizziness [Unknown]
  - Asthenia [Unknown]
  - Feeling hot [Unknown]
  - Pyrexia [Recovering/Resolving]
  - Oropharyngeal pain [Unknown]
  - Eczema [Unknown]
  - Fatigue [Unknown]
  - Urinary tract infection [Recovered/Resolved]
  - Eye pain [Unknown]
  - Infection [Unknown]
  - Abnormal faeces [Recovering/Resolving]
  - Abdominal discomfort [Unknown]
